FAERS Safety Report 10262827 (Version 2)
Quarter: 2014Q2

REPORT INFORMATION
  Report Type: Report from Study
  Country: US (occurrence: US)
  Receive Date: 20140626
  Receipt Date: 20140626
  Transmission Date: 20141212
  Serious: Yes (Other)
  Sender: FDA-Public Use
  Company Number: US-MYLANLABS-2013S1018033

PATIENT
  Age: 47 Year
  Sex: Male

DRUGS (14)
  1. CLOZAPINE TABLETS [Suspect]
     Indication: SCHIZOPHRENIA, PARANOID TYPE
     Route: 048
     Dates: end: 20130813
  2. SYMMETREL [Concomitant]
  3. ASPIRIN [Concomitant]
  4. COGENTIN [Concomitant]
  5. BENADRYL [Concomitant]
  6. DIFLUCAN [Concomitant]
  7. LOPID [Concomitant]
  8. HALDOL [Concomitant]
  9. HYDROCORTISONE CREAM [Concomitant]
  10. ZYPREXA [Concomitant]
  11. INDERAL [Concomitant]
  12. VITAMIN B6 [Concomitant]
  13. VITAMIN E [Concomitant]
  14. TINACTIN [Concomitant]

REACTIONS (1)
  - Granulocytopenia [Not Recovered/Not Resolved]
